FAERS Safety Report 7724646-8 (Version None)
Quarter: 2011Q3

REPORT INFORMATION
  Report Type: 
  Country: None (occurrence: None)
  Receive Date: 20110901
  Receipt Date: 20110823
  Transmission Date: 20111222
  Serious: Yes (Hospitalization)
  Sender: FDA-Public Use
  Company Number: JP-ASTRAZENECA-2011SE49364

PATIENT
  Age: 58 Year
  Sex: Male

DRUGS (3)
  1. OMEPRAZOLE [Suspect]
     Route: 041
     Dates: start: 20110815, end: 20110817
  2. FAMOTIDINE [Suspect]
     Route: 041
     Dates: start: 20110818
  3. FAMOTIDINE [Suspect]
     Route: 041
     Dates: start: 20110814, end: 20110814

REACTIONS (3)
  - RHABDOMYOLYSIS [None]
  - BLOOD CREATINE PHOSPHOKINASE INCREASED [None]
  - MYALGIA [None]
